FAERS Safety Report 22385777 (Version 1)
Quarter: 2023Q2

REPORT INFORMATION
  Report Type: Spontaneous
  Country: None (occurrence: US)
  Receive Date: 20230530
  Receipt Date: 20230530
  Transmission Date: 20230721
  Serious: No
  Sender: FDA-Public Use
  Company Number: US-Akorn Operating Company, LLC-2142143

PATIENT
  Age: 68 Year
  Sex: Male

DRUGS (1)
  1. KETOTIFEN FUMARATE [Suspect]
     Active Substance: KETOTIFEN FUMARATE
     Indication: Dry eye

REACTIONS (3)
  - Eye discharge [Not Recovered/Not Resolved]
  - Periorbital swelling [Not Recovered/Not Resolved]
  - Visual impairment [Not Recovered/Not Resolved]
